FAERS Safety Report 24086693 (Version 2)
Quarter: 2024Q3

REPORT INFORMATION
  Report Type: Spontaneous
  Country: US (occurrence: None)
  Receive Date: 20240713
  Receipt Date: 20240915
  Transmission Date: 20241017
  Serious: No
  Sender: ASTRAZENECA
  Company Number: 2024A157699

PATIENT
  Age: 22855 Day
  Sex: Male

DRUGS (1)
  1. BYDUREON BCISE [Suspect]
     Active Substance: EXENATIDE
     Dosage: UNKNOWN
     Route: 058

REACTIONS (6)
  - Drug dose omission by device [Unknown]
  - Product preparation error [Unknown]
  - Product use issue [Unknown]
  - Injection site pain [Unknown]
  - Memory impairment [Unknown]
  - Device malfunction [Unknown]

NARRATIVE: CASE EVENT DATE: 20240704
